FAERS Safety Report 5837115-7 (Version None)
Quarter: 2008Q3

REPORT INFORMATION
  Report Type: 
  Country: None (occurrence: None)
  Receive Date: 20080807
  Receipt Date: 20080709
  Transmission Date: 20090109
  Serious: Yes (Life-Threatening)
  Sender: FDA-Public Use
  Company Number: JP-MERCK-0807USA02625

PATIENT
  Age: 75 Year
  Sex: Male

DRUGS (1)
  1. PEPCID [Suspect]
     Route: 041
     Dates: start: 19921014

REACTIONS (1)
  - CELLULITIS [None]
